FAERS Safety Report 18873012 (Version 3)
Quarter: 2021Q2

REPORT INFORMATION
  Report Type: Report from Study
  Country: US (occurrence: US)
  Receive Date: 20210210
  Receipt Date: 20210419
  Transmission Date: 20210717
  Serious: Yes (Death, Other)
  Sender: FDA-Public Use
  Company Number: US-TAKEDA-2021TUS008043

PATIENT
  Age: 60 Year
  Sex: Male

DRUGS (8)
  1. TEDUGLUTIDE [Suspect]
     Active Substance: TEDUGLUTIDE
     Indication: SHORT-BOWEL SYNDROME
     Dosage: 2.52 MILLIGRAM, QD
     Route: 058
     Dates: start: 20200225
  2. TEDUGLUTIDE [Suspect]
     Active Substance: TEDUGLUTIDE
     Dosage: 2.52 MILLIGRAM,QD
     Route: 058
     Dates: start: 20200226
  3. TEDUGLUTIDE [Suspect]
     Active Substance: TEDUGLUTIDE
     Indication: SHORT-BOWEL SYNDROME
     Dosage: 2.52 MILLIGRAM, QD
     Route: 058
     Dates: start: 20200225
  4. TEDUGLUTIDE [Suspect]
     Active Substance: TEDUGLUTIDE
     Indication: SHORT-BOWEL SYNDROME
     Dosage: 2.52 MILLIGRAM, QD
     Route: 058
     Dates: start: 20200225
  5. TEDUGLUTIDE [Suspect]
     Active Substance: TEDUGLUTIDE
     Indication: SHORT-BOWEL SYNDROME
     Dosage: 2.52 MILLIGRAM, QD
     Route: 058
     Dates: start: 20200225
  6. TEDUGLUTIDE [Suspect]
     Active Substance: TEDUGLUTIDE
     Dosage: 2.52 MILLIGRAM,QD
     Route: 058
     Dates: start: 20200226
  7. TEDUGLUTIDE [Suspect]
     Active Substance: TEDUGLUTIDE
     Dosage: 2.52 MILLIGRAM,QD
     Route: 058
     Dates: start: 20200226
  8. TEDUGLUTIDE [Suspect]
     Active Substance: TEDUGLUTIDE
     Dosage: 2.52 MILLIGRAM,QD
     Route: 058
     Dates: start: 20200226

REACTIONS (4)
  - Weight decreased [Unknown]
  - Eating disorder [Unknown]
  - Death [Fatal]
  - Depression [Unknown]

NARRATIVE: CASE EVENT DATE: 20210413
